FAERS Safety Report 4718382-X (Version None)
Quarter: 2005Q3

REPORT INFORMATION
  Report Type: 
  Country: None (occurrence: None)
  Receive Date: 20050720
  Receipt Date: 20050713
  Transmission Date: 20060218
  Serious: Yes (Hospitalization)
  Sender: FDA-Public Use
  Company Number: PHBS2005JP10015

PATIENT
  Age: 55 Year
  Sex: Male

DRUGS (4)
  1. CLOMIPRAMINE HCL [Suspect]
     Route: 048
  2. MAPROTILINE HYDROCHLORIDE [Suspect]
     Route: 048
  3. AMITRIPTYLINE HCL [Suspect]
     Route: 048
  4. MEXILETINE HCL [Suspect]
     Route: 048

REACTIONS (1)
  - NEUROLEPTIC MALIGNANT SYNDROME [None]
